FAERS Safety Report 14548547 (Version 1)
Quarter: 2018Q1

REPORT INFORMATION
  Report Type: Spontaneous
  Country: US (occurrence: US)
  Receive Date: 20180219
  Receipt Date: 20180219
  Transmission Date: 20180509
  Serious: No
  Sender: FDA-Public Use
  Company Number: US-ROCHE-1903558

PATIENT
  Age: 47 Year
  Sex: Female

DRUGS (6)
  1. XOLAIR [Suspect]
     Active Substance: OMALIZUMAB
     Indication: CHRONIC SPONTANEOUS URTICARIA
     Dosage: ONGOING;UNKNOWN
     Route: 058
  2. SINGULAIR [Concomitant]
     Active Substance: MONTELUKAST SODIUM
     Indication: ASTHMA
     Dosage: AT HD
     Route: 048
     Dates: start: 20161216
  3. VENTOLIN HFA [Concomitant]
     Active Substance: ALBUTEROL SULFATE
     Indication: ASTHMA
     Dosage: PRN
     Route: 065
     Dates: start: 20161222
  4. ZYRTEC [Concomitant]
     Active Substance: CETIRIZINE HYDROCHLORIDE
     Indication: URTICARIA
     Dosage: PRN
     Route: 048
     Dates: start: 20161216
  5. FLONASE [Concomitant]
     Active Substance: FLUTICASONE PROPIONATE
     Indication: RHINITIS ALLERGIC
     Dosage: 18 SPRAY EACH NOSTRIL PRN
     Route: 065
     Dates: start: 20170118
  6. EPIPEN [Concomitant]
     Active Substance: EPINEPHRINE
     Dosage: PRN, ADMIN VOL. 0.3 MG, 10.3 ML
     Route: 030
     Dates: start: 20170106

REACTIONS (2)
  - Itching scar [Unknown]
  - Dermatitis [Unknown]

NARRATIVE: CASE EVENT DATE: 201703
